FAERS Safety Report 8163519-6 (Version None)
Quarter: 2012Q1

REPORT INFORMATION
  Report Type: 
  Country: None (occurrence: None)
  Receive Date: 20120224
  Receipt Date: 20120215
  Transmission Date: 20120608
  Serious: Yes (Other)
  Sender: FDA-Public Use
  Company Number: JP-ELI_LILLY_AND_COMPANY-JP201202004568

PATIENT
  Age: 85 Year
  Sex: Male

DRUGS (2)
  1. GEMZAR [Suspect]
     Indication: PANCREATIC CARCINOMA STAGE IV
     Dosage: 1400 MG, OTHER
     Route: 042
  2. GEMZAR [Suspect]
     Dosage: 1200 MG, OTHER
     Route: 042

REACTIONS (4)
  - PLATELET COUNT DECREASED [None]
  - CELL MARKER INCREASED [None]
  - SURFACTANT PROTEIN INCREASED [None]
  - CHEST X-RAY ABNORMAL [None]
